FAERS Safety Report 11701244 (Version 2)
Quarter: 2015Q4

REPORT INFORMATION
  Report Type: Spontaneous
  Country: CH (occurrence: CH)
  Receive Date: 20151105
  Receipt Date: 20151112
  Transmission Date: 20160304
  Serious: Yes (Other)
  Sender: FDA-Public Use
  Company Number: CH-PFIZER INC-2015363228

PATIENT
  Age: 50 Year
  Sex: Male

DRUGS (4)
  1. ZANIDIP [Suspect]
     Active Substance: LERCANIDIPINE HYDROCHLORIDE
     Dosage: UNK
  2. SORTIS [Suspect]
     Active Substance: ATORVASTATIN
     Dosage: 20 MG, UNK
  3. BILAXTEN [Suspect]
     Active Substance: BILASTINE
     Dosage: 20 MG, 1X/DAY
  4. JARDIANCE [Suspect]
     Active Substance: EMPAGLIFLOZIN
     Dosage: UNK

REACTIONS (3)
  - Urticaria chronic [Unknown]
  - Phimosis [Unknown]
  - Lichen sclerosus [Unknown]
